FAERS Safety Report 5402803-3 (Version None)
Quarter: 2007Q3

REPORT INFORMATION
  Report Type: 
  Country: None (occurrence: None)
  Receive Date: 20070801
  Receipt Date: 20070713
  Transmission Date: 20080115
  Serious: Yes (Hospitalization)
  Sender: FDA-Public Use
  Company Number: SG-MERCK-0707SGP00001

PATIENT
  Age: 75 Year
  Sex: Female

DRUGS (6)
  1. FOSAMAX [Suspect]
     Indication: OSTEOPOROSIS
     Route: 065
     Dates: start: 20030101, end: 20070101
  2. ATENOLOL [Concomitant]
     Indication: HYPERTENSION
     Route: 065
  3. LOVASTATIN [Concomitant]
     Indication: HYPERLIPIDAEMIA
     Route: 065
  4. ASPIRIN [Concomitant]
     Indication: MYOCARDIAL ISCHAEMIA
     Route: 065
  5. CALCIUM (UNSPECIFIED) AND VITAMIN D (UNSPECIFIED) [Concomitant]
     Route: 065
  6. IRON (UNSPECIFIED) [Concomitant]
     Route: 065

REACTIONS (2)
  - FEMUR FRACTURE [None]
  - WRIST FRACTURE [None]
